FAERS Safety Report 9369488 (Version 1)
Quarter: 2013Q2

REPORT INFORMATION
  Report Type: Spontaneous
  Country: US (occurrence: None)
  Receive Date: 20130625
  Receipt Date: 20130625
  Transmission Date: 20140414
  Serious: Yes (Hospitalization)
  Sender: FDA-Public Use
  Company Number: None

PATIENT
  Age: 61 Year
  Sex: Male
  Weight: 74.84 kg

DRUGS (2)
  1. PRIVIGEN [Suspect]
     Indication: GUILLAIN-BARRE SYNDROME
     Dosage: DAILY X6
     Route: 042
     Dates: start: 20130524, end: 20130529
  2. PRIVIGEN [Suspect]
     Indication: GUILLAIN-BARRE SYNDROME
     Dosage: DAILY X6
     Route: 042
     Dates: start: 20130524, end: 20130529

REACTIONS (2)
  - Haemolytic anaemia [None]
  - Haemoglobin decreased [None]
